FAERS Safety Report 4876700-6 (Version None)
Quarter: 2006Q1

REPORT INFORMATION
  Report Type: 
  Country: None (occurrence: None)
  Receive Date: 20060110
  Receipt Date: 20051001
  Transmission Date: 20060701
  Serious: Yes (Hospitalization, Disabling, Other)
  Sender: FDA-Public Use
  Company Number: US-MERCK-0510USA01053

PATIENT
  Age: 48 Year
  Sex: Male
  Weight: 84 kg

DRUGS (4)
  1. VIOXX [Suspect]
     Indication: BACK PAIN
     Route: 048
     Dates: start: 19991101, end: 20031201
  2. VIOXX [Suspect]
     Route: 048
     Dates: start: 19991101, end: 20031201
  3. VIOXX [Suspect]
     Indication: PAIN
     Route: 048
     Dates: start: 19991101, end: 20031201
  4. VIOXX [Suspect]
     Route: 048
     Dates: start: 19991101, end: 20031201

REACTIONS (10)
  - ANGINA PECTORIS [None]
  - ARRHYTHMIA [None]
  - CEREBROVASCULAR ACCIDENT [None]
  - FACIAL PALSY [None]
  - MENTAL IMPAIRMENT [None]
  - MYOCARDIAL INFARCTION [None]
  - NERVOUSNESS [None]
  - ORGAN FAILURE [None]
  - OVERDOSE [None]
  - PULMONARY EMBOLISM [None]
